FAERS Safety Report 9958520 (Version 2)
Quarter: 2014Q1

REPORT INFORMATION
  Report Type: Spontaneous
  Country: JP (occurrence: JP)
  Receive Date: 20140305
  Receipt Date: 20140323
  Transmission Date: 20141002
  Serious: Yes (Hospitalization, Other)
  Sender: FDA-Public Use
  Company Number: JP-009507513-1403JPN000271

PATIENT
  Age: 86 Year
  Sex: Female
  Weight: 28 kg

DRUGS (10)
  1. JANUVIA TABLETS 50MG [Suspect]
     Indication: TYPE 2 DIABETES MELLITUS
     Dosage: 50 MG, QD
     Route: 048
     Dates: start: 2013, end: 20140226
  2. ROZEREM [Concomitant]
     Dosage: 8 MG, QD
     Route: 048
  3. SENNOSIDES [Concomitant]
     Dosage: 12 MG, BID
  4. MEMARY [Concomitant]
     Dosage: 20 MG, QD
  5. MAGNESIUM OXIDE [Concomitant]
     Dosage: 2 G, BID
  6. ACECOL [Concomitant]
     Dosage: 2 MG, QD
  7. ARICEPT D [Concomitant]
     Dosage: 10 MG, QD
  8. TAKEPRON [Concomitant]
     Dosage: 15 MG, QD
     Route: 048
  9. OPALMON [Concomitant]
     Dosage: 5 MG, BID
  10. FRANDOL [Concomitant]
     Route: 062

REACTIONS (6)
  - Loss of consciousness [Recovered/Resolved]
  - Pneumonia [Recovering/Resolving]
  - Hypoglycaemia [Recovered/Resolved]
  - Respiratory disorder [Unknown]
  - Decreased appetite [Unknown]
  - Drug-induced liver injury [Unknown]
